FAERS Safety Report 16870312 (Version 1)
Quarter: 2019Q3

REPORT INFORMATION
  Report Type: Spontaneous
  Country: CA (occurrence: CA)
  Receive Date: 20190930
  Receipt Date: 20190930
  Transmission Date: 20191005
  Serious: Yes (Other)
  Sender: FDA-Public Use
  Company Number: CA-TEVA-2019-CA-1113826

PATIENT
  Age: 57 Year
  Sex: Female

DRUGS (14)
  1. OMALIZUMAB. [Suspect]
     Active Substance: OMALIZUMAB
     Route: 058
  2. ALLEGRA [Concomitant]
     Active Substance: FEXOFENADINE HYDROCHLORIDE
     Indication: PRODUCT USED FOR UNKNOWN INDICATION
     Route: 065
  3. BENADRYL [Concomitant]
     Active Substance: DIPHENHYDRAMINE HYDROCHLORIDE
     Indication: PRODUCT USED FOR UNKNOWN INDICATION
     Route: 065
  4. IBUPROFEN. [Suspect]
     Active Substance: IBUPROFEN
     Indication: PRODUCT USED FOR UNKNOWN INDICATION
     Route: 065
  5. OMALIZUMAB. [Suspect]
     Active Substance: OMALIZUMAB
     Route: 058
  6. REACTINE /00884302/ [Concomitant]
     Active Substance: CETIRIZINE HYDROCHLORIDE
     Indication: PRODUCT USED FOR UNKNOWN INDICATION
     Route: 065
  7. OMALIZUMAB. [Suspect]
     Active Substance: OMALIZUMAB
     Route: 058
  8. CLARITIN [Concomitant]
     Active Substance: LORATADINE
     Indication: PRODUCT USED FOR UNKNOWN INDICATION
     Route: 065
  9. CETIRIZINE HYDROCHLORIDE. [Concomitant]
     Active Substance: CETIRIZINE HYDROCHLORIDE
     Route: 065
  10. CLARITIN [Concomitant]
     Active Substance: LORATADINE
     Route: 065
  11. OMALIZUMAB. [Suspect]
     Active Substance: OMALIZUMAB
     Route: 058
  12. OMALIZUMAB. [Suspect]
     Active Substance: OMALIZUMAB
     Route: 058
  13. BENADRYL [Concomitant]
     Active Substance: DIPHENHYDRAMINE HYDROCHLORIDE
     Route: 065
  14. OMALIZUMAB. [Suspect]
     Active Substance: OMALIZUMAB
     Indication: CHRONIC SPONTANEOUS URTICARIA
     Route: 058

REACTIONS (7)
  - Urticaria [Recovered/Resolved]
  - Insomnia [Recovered/Resolved]
  - Drug ineffective [Recovered/Resolved]
  - Pruritus [Recovered/Resolved]
  - Sinusitis [Recovered/Resolved]
  - Anti-thyroid antibody positive [Recovered/Resolved]
  - Swelling face [Recovered/Resolved]
